FAERS Safety Report 9022860 (Version 1)
Quarter: 2013Q1

REPORT INFORMATION
  Report Type: Spontaneous
  Country: US (occurrence: US)
  Receive Date: 20130120
  Receipt Date: 20130120
  Transmission Date: 20140127
  Serious: No
  Sender: FDA-Public Use
  Company Number: US-ALLERGAN-1217162US

PATIENT
  Sex: Female

DRUGS (6)
  1. BOTOX? [Suspect]
     Indication: MIGRAINE
     Dosage: 155 UNITS, SINGLE
     Route: 030
     Dates: start: 20121129, end: 20121129
  2. DEPAKOTE [Concomitant]
     Indication: MIGRAINE
     Dosage: 500 MG, BID
     Route: 048
  3. SUMAVEL [Concomitant]
     Indication: MIGRAINE
     Dosage: UNK, PRN
     Route: 030
  4. NEXIUM [Concomitant]
     Indication: PRODUCT USED FOR UNKNOWN INDICATION
     Dosage: 40 MG, QD
     Route: 048
  5. REMERON [Concomitant]
     Indication: SLEEP DISORDER
     Dosage: 30 MG, QPM
     Route: 048
  6. VIIBYRD [Concomitant]
     Indication: PRODUCT USED FOR UNKNOWN INDICATION
     Dosage: 40 MG, QD
     Route: 048

REACTIONS (3)
  - Pruritus [Recovering/Resolving]
  - Rash [Recovering/Resolving]
  - Drug ineffective [Unknown]
